FAERS Safety Report 7884288-0 (Version None)
Quarter: 2011Q4

REPORT INFORMATION
  Report Type: 
  Country: None (occurrence: None)
  Receive Date: 20111102
  Receipt Date: 20111026
  Transmission Date: 20120403
  Serious: No
  Sender: FDA-Public Use
  Company Number: US-PFIZER INC-2011261777

PATIENT
  Sex: Female

DRUGS (2)
  1. LIPITOR [Suspect]
     Dosage: UNK
  2. LIPITOR [Suspect]
     Dosage: 10 MG, 1X/DAY

REACTIONS (6)
  - DRY SKIN [None]
  - RASH [None]
  - SKIN IRRITATION [None]
  - PRURITUS [None]
  - URTICARIA [None]
  - SKIN HYPERTROPHY [None]
